FAERS Safety Report 6207519-1 (Version None)
Quarter: 2009Q2

REPORT INFORMATION
  Report Type: 
  Country: None (occurrence: None)
  Receive Date: 20090526
  Receipt Date: 20090511
  Transmission Date: 20091009
  Serious: Yes (Other)
  Sender: FDA-Public Use
  Company Number: 1000001629

PATIENT
  Age: 33 Year
  Sex: Male

DRUGS (7)
  1. CELEXA [Suspect]
     Dosage: ORAL
     Route: 048
     Dates: end: 20071027
  2. EFFEXOR [Suspect]
     Dosage: ORAL
     Route: 048
  3. CLOBAZAM [Concomitant]
  4. LYRICA [Concomitant]
  5. SEROQUEL [Concomitant]
  6. TEGRETOL [Concomitant]
  7. TOPAMAX [Concomitant]

REACTIONS (3)
  - ANGER [None]
  - INCONTINENCE [None]
  - PSYCHOTIC DISORDER [None]
